FAERS Safety Report 6432088-0 (Version None)
Quarter: 2009Q4

REPORT INFORMATION
  Report Type: 
  Country: None (occurrence: None)
  Receive Date: 20091109
  Receipt Date: 20091102
  Transmission Date: 20100525
  Serious: Yes (Other)
  Sender: FDA-Public Use
  Company Number: US-ROCHE-666163

PATIENT
  Age: 10 Year
  Sex: Female
  Weight: 21 kg

DRUGS (1)
  1. TAMIFLU [Suspect]
     Route: 048

REACTIONS (1)
  - HAEMOLYSIS [None]
